FAERS Safety Report 13055528 (Version 1)
Quarter: 2016Q4

REPORT INFORMATION
  Report Type: Spontaneous
  Country: RU (occurrence: RU)
  Receive Date: 20161222
  Receipt Date: 20161222
  Transmission Date: 20170207
  Serious: Yes (Other)
  Sender: FDA-Public Use
  Company Number: RU-BAYER-2016-238370

PATIENT
  Age: 33 Year
  Sex: Female

DRUGS (1)
  1. YARINA [Suspect]
     Active Substance: DROSPIRENONE\ETHINYL ESTRADIOL
     Dosage: UNK
     Route: 048
     Dates: start: 2014

REACTIONS (6)
  - Vasodilatation [None]
  - Pain [None]
  - Abdominal pain upper [None]
  - Convulsions local [None]
  - Gastritis [None]
  - Abdominal discomfort [None]

NARRATIVE: CASE EVENT DATE: 2016
